FAERS Safety Report 13140109 (Version 1)
Quarter: 2017Q1

REPORT INFORMATION
  Report Type: Spontaneous
  Country: US (occurrence: US)
  Receive Date: 20170123
  Receipt Date: 20170123
  Transmission Date: 20170428
  Serious: No
  Sender: FDA-Public Use
  Company Number: US-ST. RENATUS-2016STR00002

PATIENT
  Age: 32 Year
  Sex: Female

DRUGS (1)
  1. KOVANAZE [Suspect]
     Active Substance: OXYMETAZOLINE HYDROCHLORIDE\TETRACAINE HYDROCHLORIDE
     Indication: DENTAL CARE
     Dosage: 1 ACTUATIONS, EVERY 4 MINUTES X2
     Route: 045
     Dates: start: 20161206, end: 20161206

REACTIONS (6)
  - Productive cough [None]
  - Throat tightness [None]
  - Hypersensitivity [None]
  - Dyspnoea [Recovered/Resolved]
  - Dysphagia [Recovered/Resolved]
  - Panic reaction [Recovered/Resolved]

NARRATIVE: CASE EVENT DATE: 20161206
